FAERS Safety Report 8557383-0 (Version None)
Quarter: 2012Q3

REPORT INFORMATION
  Report Type: 
  Country: None (occurrence: None)
  Receive Date: 20120801
  Receipt Date: 20120723
  Transmission Date: 20120928
  Serious: Yes (Other)
  Sender: FDA-Public Use
  Company Number: GB-TEVA-349693ISR

PATIENT
  Age: 89 Year
  Sex: Female

DRUGS (3)
  1. DIGOXIN [Concomitant]
  2. RANITIDINE [Concomitant]
  3. DOXYCYCLINE HCL [Suspect]
     Dosage: 200 MILLIGRAM;
     Dates: start: 20120606, end: 20120608

REACTIONS (3)
  - AMPUTATION [None]
  - INFECTION [None]
  - HYPERGLYCAEMIA [None]
